FAERS Safety Report 26103128 (Version 1)
Quarter: 2025Q4

REPORT INFORMATION
  Report Type: Spontaneous
  Country: US (occurrence: US)
  Receive Date: 20251129
  Receipt Date: 20251129
  Transmission Date: 20260118
  Serious: No
  Sender: IBSA INSTITUT BIOCHIMIQUE
  Company Number: US-IBSA PHARMA INC.-2025IBS000111

PATIENT

DRUGS (6)
  1. TIROSINT [Suspect]
     Active Substance: LEVOTHYROXINE SODIUM
     Indication: Autoimmune thyroiditis
     Dosage: ONCE DAILY
     Route: 065
     Dates: start: 2015
  2. TIROSINT [Suspect]
     Active Substance: LEVOTHYROXINE SODIUM
     Dosage: 75 MICROGRAM FOR 6 MONTHS
     Route: 065
  3. TIROSINT [Suspect]
     Active Substance: LEVOTHYROXINE SODIUM
     Dosage: 88 MICROGRAM FOR 3 TO 6 MONTHS
     Route: 065
  4. TIROSINT [Suspect]
     Active Substance: LEVOTHYROXINE SODIUM
     Dosage: 75 MICROGRAM
     Route: 065
  5. TIROSINT [Suspect]
     Active Substance: LEVOTHYROXINE SODIUM
     Dosage: 77 MICROGRAM, QOD
     Route: 065
  6. TIROSINT [Suspect]
     Active Substance: LEVOTHYROXINE SODIUM
     Dosage: 88 MICROGRAM, QOD
     Route: 065

REACTIONS (1)
  - Thyroid function test abnormal [Unknown]
